FAERS Safety Report 24854279 (Version 1)
Quarter: 2025Q1

REPORT INFORMATION
  Report Type: Spontaneous
  Country: US (occurrence: US)
  Receive Date: 20250117
  Receipt Date: 20250117
  Transmission Date: 20250409
  Serious: Yes (Other)
  Sender: ROCHE
  Company Number: US-ROCHE-10000182123

PATIENT
  Sex: Female

DRUGS (3)
  1. XOLAIR PFS [Suspect]
     Active Substance: OMALIZUMAB
     Indication: Asthma
     Dosage: FORM STRENGTH: 1500 MG/ML
     Route: 058
     Dates: start: 202303
  2. XOLAIR PFS [Suspect]
     Active Substance: OMALIZUMAB
  3. Mirena IUD SYS [Concomitant]

REACTIONS (1)
  - Endometrial hyperplasia [Unknown]
